FAERS Safety Report 4877169-8 (Version None)
Quarter: 2005Q4

REPORT INFORMATION
  Report Type: 
  Country: None (occurrence: None)
  Receive Date: 20051206
  Receipt Date: 20051003
  Transmission Date: 20060501
  Serious: No
  Sender: FDA-Public Use
  Company Number: USA0510109857

PATIENT
  Age: 45 Year
  Sex: Male

DRUGS (3)
  1. CYMBALTA [Suspect]
     Indication: AFFECTIVE DISORDER
     Dosage: 30 MG/2 DAY
     Dates: start: 20050929
  2. SYMBYAX [Suspect]
     Indication: PSYCHOTIC DISORDER
     Route: 065
  3. XANAX [Concomitant]

REACTIONS (3)
  - DRUG INEFFECTIVE [None]
  - PANIC REACTION [None]
  - SOMNOLENCE [None]
